FAERS Safety Report 9953062 (Version 1)
Quarter: 2014Q1

REPORT INFORMATION
  Report Type: Report from Study
  Country: US (occurrence: US)
  Receive Date: 20140304
  Receipt Date: 20140304
  Transmission Date: 20141002
  Serious: No
  Sender: FDA-Public Use
  Company Number: US-ABBVIE-13P-163-1074680-00

PATIENT
  Age: 49 Year
  Sex: Female

DRUGS (3)
  1. HUMIRA [Suspect]
     Indication: PSORIASIS
     Dates: start: 20130405
  2. VENLAFAXINE HCL ER [Concomitant]
     Indication: HOT FLUSH
     Dosage: 150 MG DAILY
  3. HCL [Concomitant]
     Indication: WEIGHT DECREASED
     Dosage: DROPS

REACTIONS (1)
  - Injection site pain [Recovered/Resolved]
